FAERS Safety Report 9198509 (Version 3)
Quarter: 2013Q2

REPORT INFORMATION
  Report Type: Spontaneous
  Country: GB (occurrence: GB)
  Receive Date: 20130329
  Receipt Date: 20130501
  Transmission Date: 20140414
  Serious: Yes (Other)
  Sender: FDA-Public Use
  Company Number: PHFR2013GB001219

PATIENT
  Age: 26 Year
  Sex: Male

DRUGS (5)
  1. CLOZARIL [Suspect]
     Indication: SCHIZOPHRENIA
     Dosage: UNK
     Dates: start: 20120809
  2. CLOZARIL [Suspect]
     Dosage: 50 MG, BID
     Route: 048
  3. AMISULPRIDE [Concomitant]
     Indication: SCHIZOPHRENIA
     Dosage: 400 MG, UNK
     Route: 048
     Dates: start: 2009
  4. DEPAKOTE [Concomitant]
     Indication: SCHIZOPHRENIA
     Dosage: 1000 MG, UNK
     Route: 048
  5. BISOPROLOL [Concomitant]
     Indication: TACHYCARDIA
     Dosage: 2.5 MG, UNK
     Route: 048

REACTIONS (1)
  - Blood prolactin increased [Not Recovered/Not Resolved]
